FAERS Safety Report 24861789 (Version 4)
Quarter: 2025Q2

REPORT INFORMATION
  Report Type: Report from Study
  Country: US (occurrence: US)
  Receive Date: 20250120
  Receipt Date: 20250410
  Transmission Date: 20250716
  Serious: Yes (Other)
  Sender: SUNOVION
  Company Number: US-SUMITOMO PHARMA SWITZERLAND GMBH-2025SPA000268

PATIENT

DRUGS (2)
  1. ORGOVYX [Suspect]
     Active Substance: RELUGOLIX
     Indication: Prostate cancer
     Route: 048
     Dates: start: 20241219, end: 20241219
  2. ORGOVYX [Suspect]
     Active Substance: RELUGOLIX
     Dosage: 120 MG, QD
     Route: 048
     Dates: start: 20241220

REACTIONS (18)
  - Nephrolithiasis [Unknown]
  - Surgery [Unknown]
  - Pollakiuria [Unknown]
  - Sleep disorder [Unknown]
  - Restlessness [Unknown]
  - Brain fog [Unknown]
  - Emotional disorder [Unknown]
  - Irritability [Unknown]
  - Erectile dysfunction [Unknown]
  - Night sweats [Unknown]
  - Myalgia [Unknown]
  - Arthralgia [Unknown]
  - Hot flush [Unknown]
  - Fatigue [Unknown]
  - Musculoskeletal pain [Unknown]
  - Insomnia [Unknown]
  - Libido decreased [Unknown]
  - Weight increased [Unknown]

NARRATIVE: CASE EVENT DATE: 20250217
